FAERS Safety Report 8803759 (Version 1)
Quarter: 2012Q4

REPORT INFORMATION
  Report Type: Report from Study
  Country: ES (occurrence: ES)
  Receive Date: 20120924
  Receipt Date: 20120924
  Transmission Date: 20130627
  Serious: Yes (Hospitalization)
  Sender: FDA-Public Use
  Company Number: ES-JNJFOC-20120907863

PATIENT
  Age: 71 Year
  Sex: Female
  Weight: 68 kg

DRUGS (8)
  1. REMICADE [Suspect]
     Indication: RHEUMATOID ARTHRITIS
     Route: 042
     Dates: end: 20120119
  2. REMICADE [Suspect]
     Indication: RHEUMATOID ARTHRITIS
     Route: 042
     Dates: start: 20000301
  3. FOLIC ACID [Concomitant]
     Dates: start: 20120203
  4. OMEPRAZOLE [Concomitant]
     Dates: start: 20120203
  5. CALCIUM AND VITAMIN D [Concomitant]
     Dates: start: 20120203
  6. PARACETAMOL [Concomitant]
     Dates: start: 20120203
  7. ACE INHIBITORS [Concomitant]
     Dates: start: 20120203
  8. METHOTREXATE [Concomitant]
     Dates: start: 20120203

REACTIONS (3)
  - Renal failure chronic [Recovered/Resolved with Sequelae]
  - Lobar pneumonia [Recovered/Resolved]
  - Diarrhoea infectious [Recovered/Resolved]
